FAERS Safety Report 10240683 (Version 1)
Quarter: 2014Q2

REPORT INFORMATION
  Report Type: Spontaneous
  Country: US (occurrence: US)
  Receive Date: 20140617
  Receipt Date: 20140617
  Transmission Date: 20141212
  Serious: Yes (Hospitalization, Other)
  Sender: FDA-Public Use
  Company Number: US-ASTRAZENECA-2014SE40235

PATIENT
  Age: 49 Year
  Sex: Female
  Weight: 94.3 kg

DRUGS (10)
  1. SEROQUEL XR [Suspect]
     Indication: BIPOLAR DISORDER
     Route: 048
     Dates: start: 20140501, end: 20140606
  2. SEROQUEL XR [Suspect]
     Indication: MAJOR DEPRESSION
     Route: 048
     Dates: start: 20140501, end: 20140606
  3. ADVAIR [Concomitant]
     Indication: ASTHMA
     Dosage: 100/50, 1 PUFF TWO TIMES A DAY
     Route: 055
     Dates: start: 2006
  4. BROMOCRITINE [Concomitant]
     Indication: BLOOD PROLACTIN DECREASED
     Route: 048
     Dates: start: 2010
  5. ATIVAN [Concomitant]
     Indication: MENIERE^S DISEASE
     Route: 048
     Dates: start: 2012
  6. ZOFRAN [Concomitant]
     Indication: MENIERE^S DISEASE
     Route: 048
     Dates: start: 2012
  7. DIVALPROEX ER [Concomitant]
     Indication: BIPOLAR DISORDER
     Route: 048
     Dates: start: 20140501
  8. SUCRALFATE [Concomitant]
     Indication: GASTRIC DISORDER
     Dosage: 1GM QID
     Route: 048
     Dates: start: 201406
  9. RANITIDINE [Concomitant]
     Indication: GASTRIC DISORDER
     Route: 048
     Dates: start: 201406
  10. LANSOPROPAZOLE [Concomitant]
     Indication: GASTROOESOPHAGEAL REFLUX DISEASE
     Route: 048
     Dates: start: 2011

REACTIONS (14)
  - Limb discomfort [Recovered/Resolved]
  - Loss of consciousness [Unknown]
  - Splenic artery aneurysm [Unknown]
  - Vision blurred [Unknown]
  - Diverticulitis [Unknown]
  - Memory impairment [Unknown]
  - Chest pain [Recovered/Resolved]
  - Heart rate abnormal [Unknown]
  - Dizziness [Recovered/Resolved]
  - Tremor [Unknown]
  - Dysarthria [Unknown]
  - Fatigue [Unknown]
  - Dyspepsia [Unknown]
  - Somnolence [Unknown]
